FAERS Safety Report 5514117-1 (Version None)
Quarter: 2007Q4

REPORT INFORMATION
  Report Type: 
  Country: None (occurrence: None)
  Receive Date: 20071113
  Receipt Date: 20071108
  Transmission Date: 20080405
  Serious: Yes (Hospitalization, Other)
  Sender: FDA-Public Use
  Company Number: US-BRISTOL-MYERS SQUIBB COMPANY-13975594

PATIENT
  Sex: Female
  Weight: 50 kg

DRUGS (2)
  1. COUMADIN [Suspect]
     Route: 048
  2. MULTI-VITAMIN [Concomitant]

REACTIONS (8)
  - FULL BLOOD COUNT DECREASED [None]
  - LOSS OF CONSCIOUSNESS [None]
  - MYOCARDIAL INFARCTION [None]
  - OESOPHAGEAL HAEMORRHAGE [None]
  - OESOPHAGEAL RUPTURE [None]
  - PARAESTHESIA [None]
  - TRANSIENT ISCHAEMIC ATTACK [None]
  - VOMITING [None]
